FAERS Safety Report 5046808-3 (Version None)
Quarter: 2006Q2

REPORT INFORMATION
  Report Type: 
  Country: None (occurrence: None)
  Receive Date: 20060601
  Receipt Date: 20060315
  Transmission Date: 20061013
  Serious: No
  Sender: FDA-Public Use
  Company Number: 2006PV010289

PATIENT
  Age: 43 Year
  Sex: Female
  Weight: 94.8018 kg

DRUGS (2)
  1. BYETTA [Suspect]
     Indication: DIABETES MELLITUS NON-INSULIN-DEPENDENT
     Dosage: 5 MCG BID SC
     Route: 058
     Dates: start: 20060314
  2. GLUCOPHAGE [Concomitant]

REACTIONS (9)
  - CHILLS [None]
  - DRUG EFFECT DECREASED [None]
  - FATIGUE [None]
  - FEELING COLD [None]
  - INFREQUENT BOWEL MOVEMENTS [None]
  - MICTURITION URGENCY [None]
  - MUSCULAR WEAKNESS [None]
  - SINUS CONGESTION [None]
  - SINUS HEADACHE [None]
